FAERS Safety Report 13927186 (Version 3)
Quarter: 2017Q4

REPORT INFORMATION
  Report Type: Report from Study
  Country: US (occurrence: US)
  Receive Date: 20170831
  Receipt Date: 20171222
  Transmission Date: 20180320
  Serious: Yes (Hospitalization)
  Sender: FDA-Public Use
  Company Number: US-ACTELION-A-NJ2017-158832

PATIENT
  Age: 75 Year
  Sex: Female

DRUGS (1)
  1. OPSUMIT [Suspect]
     Active Substance: MACITENTAN
     Indication: PULMONARY ARTERIAL HYPERTENSION
     Dosage: 10 MG, QD
     Route: 048
     Dates: start: 20161209

REACTIONS (11)
  - Cardiac operation [Not Recovered/Not Resolved]
  - Heart rate irregular [Unknown]
  - Syncope [Unknown]
  - Terminal state [Unknown]
  - Dysphagia [Unknown]
  - Vomiting [Unknown]
  - Chest discomfort [Unknown]
  - Cardiac arrest [Unknown]
  - Dyspnoea [Unknown]
  - Nausea [Unknown]
  - Drug dose omission [Unknown]

NARRATIVE: CASE EVENT DATE: 20170825
